FAERS Safety Report 4851364-6 (Version None)
Quarter: 2005Q4

REPORT INFORMATION
  Report Type: 
  Country: None (occurrence: None)
  Receive Date: 20051208
  Receipt Date: 20051118
  Transmission Date: 20060501
  Serious: No
  Sender: FDA-Public Use
  Company Number: JP200511000195

PATIENT
  Age: 39 Year
  Sex: Female

DRUGS (1)
  1. SOMATROPIN (SOMATROPIN UNKNOWN FORMULATION) UNKNOWN [Suspect]
     Dosage: 4 MG, WEEKLY (1/W), SUBCUTANEOUS
     Route: 058
     Dates: start: 20030220

REACTIONS (3)
  - GINGIVAL INFECTION [None]
  - GINGIVITIS [None]
  - TOOTHACHE [None]
